FAERS Safety Report 25990415 (Version 1)
Quarter: 2025Q4

REPORT INFORMATION
  Report Type: Spontaneous
  Country: JP (occurrence: JP)
  Receive Date: 20251103
  Receipt Date: 20251103
  Transmission Date: 20260118
  Serious: Yes (Life-Threatening, Other)
  Sender: PFIZER
  Company Number: JP-PFIZER INC-202500213775

PATIENT
  Age: 82 Year
  Sex: Male

DRUGS (1)
  1. TALZENNA [Suspect]
     Active Substance: TALAZOPARIB TOSYLATE
     Indication: Prostate cancer
     Dosage: 0.5 MG

REACTIONS (4)
  - Neutrophil count decreased [Unknown]
  - Malaise [Unknown]
  - Decreased appetite [Unknown]
  - Anaemia [Unknown]
